FAERS Safety Report 15426453 (Version 2)
Quarter: 2018Q4

REPORT INFORMATION
  Report Type: Spontaneous
  Country: ZA (occurrence: ZA)
  Receive Date: 20180925
  Receipt Date: 20181009
  Transmission Date: 20190204
  Serious: Yes (Death, Hospitalization)
  Sender: FDA-Public Use
  Company Number: ZA-PFIZER INC-2018384181

PATIENT
  Age: 56 Year
  Sex: Female

DRUGS (8)
  1. ECOTRIN [Suspect]
     Active Substance: ASPIRIN
     Dosage: 81 MG, UNK
  2. PREMARIN [Suspect]
     Active Substance: ESTROGENS, CONJUGATED
     Dosage: 0.3 MG, UNK
  3. ANGELIQ [Suspect]
     Active Substance: DROSPIRENONE\ESTRADIOL
  4. BILOCOR [Suspect]
     Active Substance: BISOPROLOL FUMARATE
     Dosage: 5 MG, UNK
  5. EVOREL CONTI [Suspect]
     Active Substance: ESTRADIOL\NORETHINDRONE ACETATE
  6. VUSOR [Suspect]
     Active Substance: ROSUVASTATIN CALCIUM
     Dosage: 5 MG, UNK
  7. PREXUM PLUS [INDAPAMIDE;PERINDOPRIL ERBUMINE] [Suspect]
     Active Substance: INDAPAMIDE\PERINDOPRIL ERBUMINE
     Dosage: 5/12.5MG
  8. CALCIFEROL [COLECALCIFEROL] [Suspect]
     Active Substance: CHOLECALCIFEROL
     Dosage: 50000 IU, UNK

REACTIONS (1)
  - Road traffic accident [Fatal]

NARRATIVE: CASE EVENT DATE: 20180729
